FAERS Safety Report 13160819 (Version 1)
Quarter: 2017Q1

REPORT INFORMATION
  Report Type: Spontaneous
  Country: US (occurrence: US)
  Receive Date: 20170130
  Receipt Date: 20170130
  Transmission Date: 20170428
  Serious: Yes (Other)
  Sender: FDA-Public Use
  Company Number: US-AMGEN-USASP2017012591

PATIENT
  Sex: Male

DRUGS (2)
  1. ENBREL [Suspect]
     Active Substance: ETANERCEPT
     Dosage: UNK
     Route: 065
  2. ENBREL [Suspect]
     Active Substance: ETANERCEPT
     Indication: PSORIATIC ARTHROPATHY
     Dosage: 50 MG, QWK
     Route: 065
     Dates: end: 201612

REACTIONS (5)
  - Haemorrhagic diathesis [Unknown]
  - Drug dose omission [Unknown]
  - Fall [Unknown]
  - Bleeding time prolonged [Unknown]
  - Subdural haematoma [Unknown]

NARRATIVE: CASE EVENT DATE: 2016
